FAERS Safety Report 24033550 (Version 1)
Quarter: 2024Q3

REPORT INFORMATION
  Report Type: Spontaneous
  Country: US (occurrence: US)
  Receive Date: 20240701
  Receipt Date: 20240701
  Transmission Date: 20241016
  Serious: No
  Sender: BAUSCH AND LOMB
  Company Number: US-BAUSCHBL-2024BNL029086

PATIENT
  Sex: Female

DRUGS (2)
  1. HYDROCORTISONE\NEOMYCIN SULFATE\POLYMYXIN B SULFATE [Suspect]
     Active Substance: HYDROCORTISONE\NEOMYCIN SULFATE\POLYMYXIN B SULFATE
     Indication: Fungal infection
     Route: 001
     Dates: start: 20240619, end: 202406
  2. HYDROCORTISONE\NEOMYCIN SULFATE\POLYMYXIN B SULFATE [Suspect]
     Active Substance: HYDROCORTISONE\NEOMYCIN SULFATE\POLYMYXIN B SULFATE
     Indication: Bacterial infection

REACTIONS (1)
  - Tinnitus [Not Recovered/Not Resolved]

NARRATIVE: CASE EVENT DATE: 20240601
